FAERS Safety Report 9432900 (Version 1)
Quarter: 2013Q3

REPORT INFORMATION
  Report Type: Spontaneous
  Country: MX (occurrence: MX)
  Receive Date: 20130731
  Receipt Date: 20130731
  Transmission Date: 20140515
  Serious: Yes (Disabling, Other)
  Sender: FDA-Public Use
  Company Number: PHHY2013MX080140

PATIENT
  Age: 86 Year
  Sex: Female

DRUGS (1)
  1. ACLASTA [Suspect]
     Indication: BONE DENSITY ABNORMAL
     Dosage: 5 MG/100ML ANNUALLY
     Route: 042

REACTIONS (4)
  - Bone fissure [Recovering/Resolving]
  - Fall [Recovering/Resolving]
  - Dizziness [Recovered/Resolved]
  - Cough [Recovering/Resolving]
